FAERS Safety Report 4646161-0 (Version None)
Quarter: 2005Q2

REPORT INFORMATION
  Report Type: 
  Country: None (occurrence: None)
  Receive Date: 20050422
  Receipt Date: 20050422
  Transmission Date: 20051028
  Serious: Yes (Other)
  Sender: FDA-Public Use
  Company Number: None

PATIENT
  Age: 70 Year
  Sex: Male
  Weight: 61.1 kg

DRUGS (5)
  1. GATIFLOXACIN [Suspect]
  2. SYNTHROID [Concomitant]
  3. COUMADIN [Concomitant]
  4. ALENDRONATE SODIUM [Concomitant]
  5. TRIAMCINOLONE [Concomitant]

REACTIONS (1)
  - RASH [None]
